FAERS Safety Report 18126456 (Version 3)
Quarter: 2021Q1

REPORT INFORMATION
  Report Type: Report from Study
  Country: US (occurrence: US)
  Receive Date: 20200808
  Receipt Date: 20210107
  Transmission Date: 20210419
  Serious: Yes (Other)
  Sender: FDA-Public Use
  Company Number: NVSC2020US218665

PATIENT
  Age: 55 Year
  Sex: Female

DRUGS (3)
  1. ENTRESTO [Suspect]
     Active Substance: SACUBITRIL\VALSARTAN
     Dosage: 100 MG, BID (49/51 MG)
     Route: 048
  2. ENTRESTO [Suspect]
     Active Substance: SACUBITRIL\VALSARTAN
     Dosage: 50 MG, BID
     Route: 048
  3. ENTRESTO [Suspect]
     Active Substance: SACUBITRIL\VALSARTAN
     Indication: CARDIAC FAILURE
     Dosage: 50 MG (24/26 MG), BID
     Route: 048
     Dates: start: 20200624

REACTIONS (8)
  - Drug intolerance [Recovering/Resolving]
  - Somnolence [Unknown]
  - Anosmia [Recovering/Resolving]
  - Headache [Recovering/Resolving]
  - SARS-CoV-2 test positive [Recovering/Resolving]
  - Fatigue [Unknown]
  - Dizziness [Recovering/Resolving]
  - Ageusia [Recovering/Resolving]

NARRATIVE: CASE EVENT DATE: 20200713
